FAERS Safety Report 16570448 (Version 9)
Quarter: 2025Q4

REPORT INFORMATION
  Report Type: Spontaneous
  Country: CA (occurrence: CA)
  Receive Date: 20190715
  Receipt Date: 20251029
  Transmission Date: 20260117
  Serious: Yes (Other)
  Sender: AUROBINDO
  Company Number: CA-AUROBINDO-AUR-APL-2019-039095

PATIENT
  Age: 47 Year
  Sex: Female

DRUGS (30)
  1. RAMIPRIL [Suspect]
     Active Substance: RAMIPRIL
     Indication: Product used for unknown indication
     Dosage: 2.5 MILLIGRAM, ONCE A DAY(1 EVERY 1 DAY)
     Route: 048
  2. ROSUVASTATIN [Suspect]
     Active Substance: ROSUVASTATIN
     Indication: Product used for unknown indication
     Dosage: 20 MILLIGRAM, ONCE A DAY(1 EVERY 1 DAY)
     Route: 048
  3. SANDOSTATIN [Suspect]
     Active Substance: OCTREOTIDE ACETATE
     Indication: Pancreatic neuroendocrine tumour
     Dosage: 30 MILLIGRAM, 1 EVERY 1 MONTHS
     Route: 030
  4. SANDOSTATIN [Suspect]
     Active Substance: OCTREOTIDE ACETATE
     Dosage: UNK
     Route: 058
  5. SANDOSTATIN [Suspect]
     Active Substance: OCTREOTIDE ACETATE
     Indication: Pancreatic neuroendocrine tumour
     Dosage: UNK, TOTAL
     Route: 058
  6. SANDOSTATIN [Suspect]
     Active Substance: OCTREOTIDE ACETATE
     Dosage: 30 MILLIGRAM, 1 EVERY 1 MONTHS
     Route: 030
  7. SANDOSTATIN [Suspect]
     Active Substance: OCTREOTIDE ACETATE
     Indication: Pancreatic neuroendocrine tumour
     Dosage: 30 MILLIGRAM, 1 EVERY 1 MONTH
     Route: 030
  8. SUNITINIB MALATE [Suspect]
     Active Substance: SUNITINIB MALATE
     Indication: Pancreatic neuroendocrine tumour metastatic
     Dosage: UNK
     Route: 065
  9. OCTREOTIDE ACETATE [Suspect]
     Active Substance: OCTREOTIDE ACETATE
     Indication: Pancreatic neuroendocrine tumour
     Dosage: UNK
     Route: 058
  10. OCTREOTIDE ACETATE [Suspect]
     Active Substance: OCTREOTIDE ACETATE
     Dosage: 30 MILLIGRAM (1 EVERY 1 MONTH)
     Route: 030
  11. OCTREOTIDE ACETATE [Suspect]
     Active Substance: OCTREOTIDE ACETATE
     Dosage: UNK
     Route: 058
  12. OCTREOTIDE ACETATE [Suspect]
     Active Substance: OCTREOTIDE ACETATE
     Dosage: 30 MILLIGRAM (1 EVERY 3 WEEKS)
     Route: 030
  13. OCTREOTIDE ACETATE [Suspect]
     Active Substance: OCTREOTIDE ACETATE
     Dosage: 30 MILLIGRAM (1 EVERY 1 MONTHS)
     Route: 030
  14. AFINITOR [Suspect]
     Active Substance: EVEROLIMUS
     Indication: Pancreatic neuroendocrine tumour metastatic
     Dosage: 10 MILLIGRAM, ONCE A DAY(1 EVERY 1 DAY)
     Route: 048
  15. AFINITOR [Suspect]
     Active Substance: EVEROLIMUS
     Dosage: ONCE A DAY (1 EVERY 1 DAY)
     Route: 048
  16. AFINITOR [Suspect]
     Active Substance: EVEROLIMUS
     Dosage: 10 MILLIGRAM
     Route: 048
  17. ESOMEPRAZOLE MAGNESIUM [Concomitant]
     Active Substance: ESOMEPRAZOLE MAGNESIUM
     Indication: Pancreatic neuroendocrine tumour metastatic
     Dosage: UNK
     Route: 065
  18. Glycerol;Sodium citrate;Sodium lauryl sulfate [Concomitant]
     Indication: Product used for unknown indication
     Dosage: UNK
     Route: 065
  19. ROSUVASTATIN CALCIUM [Concomitant]
     Active Substance: ROSUVASTATIN CALCIUM
     Indication: Blood cholesterol abnormal
     Dosage: 20 MILLIGRAM, ONCE A DAY (1 EVERY 1 DAY)
     Route: 048
  20. ROSUVASTATIN CALCIUM [Concomitant]
     Active Substance: ROSUVASTATIN CALCIUM
     Dosage: UNK
     Route: 065
  21. SYNTHROID [Concomitant]
     Active Substance: LEVOTHYROXINE SODIUM
     Indication: Product used for unknown indication
     Dosage: 75 MICROGRAM, ONCE A DAY
     Route: 048
  22. SYNTHROID [Concomitant]
     Active Substance: LEVOTHYROXINE SODIUM
     Dosage: 75 MILLIGRAM
     Route: 048
  23. SYNTHROID [Concomitant]
     Active Substance: LEVOTHYROXINE SODIUM
     Dosage: UNK
     Route: 065
  24. VITAMIN D3 [Concomitant]
     Active Substance: CHOLECALCIFEROL
     Indication: Product used for unknown indication
     Dosage: 10000 INTERNATIONAL UNIT, EVERY WEEK
     Route: 048
  25. VITAMIN D3 [Concomitant]
     Active Substance: CHOLECALCIFEROL
     Dosage: UNK UNK, EVERY WEEK
     Route: 048
  26. VITAMIN D3 [Concomitant]
     Active Substance: CHOLECALCIFEROL
     Dosage: UNK
     Route: 065
  27. VITAMIN D3 [Concomitant]
     Active Substance: CHOLECALCIFEROL
     Indication: Product used for unknown indication
     Dosage: UNK
     Route: 065
  28. GESTODENE [Concomitant]
     Active Substance: GESTODENE
     Indication: Product used for unknown indication
     Dosage: UNK
     Route: 065
  29. FERROUS SULFATE ANHYDROUS [Concomitant]
     Active Substance: FERROUS SULFATE ANHYDROUS
     Indication: Product used for unknown indication
     Dosage: UNK
     Route: 065
  30. METFORMIN [Concomitant]
     Active Substance: METFORMIN HYDROCHLORIDE
     Indication: Product used for unknown indication
     Dosage: 500.0 MILLIGRAM, TWO TIMES A DAY
     Route: 065

REACTIONS (48)
  - COVID-19 [Not Recovered/Not Resolved]
  - Conjunctivitis [Not Recovered/Not Resolved]
  - Injection site nodule [Not Recovered/Not Resolved]
  - Abdominal pain upper [Recovered/Resolved]
  - Anxiety [Recovered/Resolved]
  - Blood pressure diastolic decreased [Recovered/Resolved]
  - Blood pressure systolic increased [Recovered/Resolved]
  - Body temperature decreased [Recovered/Resolved]
  - Cough [Recovered/Resolved]
  - Diabetes mellitus [Recovered/Resolved]
  - Dry skin [Recovered/Resolved]
  - Dysphagia [Recovered/Resolved]
  - Dysphonia [Recovered/Resolved]
  - Dyspnoea [Recovered/Resolved]
  - Erythema [Recovered/Resolved]
  - Eyelid oedema [Recovered/Resolved]
  - Fatigue [Recovered/Resolved]
  - Hypotension [Recovered/Resolved]
  - Hypothyroidism [Recovered/Resolved]
  - Hypoxia [Recovered/Resolved]
  - Ingrowing nail [Recovered/Resolved]
  - Injection site hypersensitivity [Recovered/Resolved]
  - Injection site induration [Recovered/Resolved]
  - Injection site mass [Recovered/Resolved]
  - Injection site pain [Recovered/Resolved]
  - Injection site warmth [Recovered/Resolved]
  - Lung disorder [Recovered/Resolved]
  - Lung infiltration [Recovered/Resolved]
  - Malignant neoplasm progression [Recovered/Resolved]
  - Muscle contractions involuntary [Recovered/Resolved]
  - Musculoskeletal pain [Recovered/Resolved]
  - Nasal discharge discolouration [Recovered/Resolved]
  - Nasopharyngitis [Recovered/Resolved]
  - Needle issue [Recovered/Resolved]
  - Neoplasm progression [Recovered/Resolved]
  - Nephritic syndrome [Recovered/Resolved]
  - Oropharyngeal pain [Recovered/Resolved]
  - Ovarian cyst [Recovered/Resolved]
  - Pancreatic neuroendocrine tumour [Recovered/Resolved]
  - Pneumonia [Recovered/Resolved]
  - Rhinorrhoea [Recovered/Resolved]
  - Skin discolouration [Recovered/Resolved]
  - Skin plaque [Recovered/Resolved]
  - Sinusitis [Not Recovered/Not Resolved]
  - Tenderness [Recovered/Resolved]
  - Urinary tract infection [Not Recovered/Not Resolved]
  - Inappropriate schedule of product administration [Not Recovered/Not Resolved]
  - Nasal congestion [Not Recovered/Not Resolved]
